FAERS Safety Report 9230444 (Version 1)
Quarter: 2013Q2

REPORT INFORMATION
  Report Type: Spontaneous
  Country: US (occurrence: US)
  Receive Date: 20130415
  Receipt Date: 20130415
  Transmission Date: 20140414
  Serious: Yes (Other)
  Sender: FDA-Public Use
  Company Number: US-PFIZER INC-2013114311

PATIENT
  Age: 38 Year
  Sex: Female
  Weight: 157.82 kg

DRUGS (11)
  1. GEODON [Suspect]
     Indication: BIPOLAR DISORDER
     Dosage: 240 MG (THREE CAPSULES OF 80MG), 1X/DAY
     Route: 048
  2. GEODON [Suspect]
     Indication: ANXIETY DISORDER
  3. GEODON [Suspect]
     Indication: PERSONALITY DISORDER
  4. TEGRETOL [Suspect]
     Dosage: UNK
  5. TEGRETOL [Suspect]
     Dosage: 200MG IN THE MORNING + 800MG AT NIGHT
  6. OMEPRAZOLE [Concomitant]
     Dosage: 40 MG, UNK
  7. NEURONTIN [Concomitant]
     Dosage: 800 MG, 3X/DAY
  8. ATENOLOL [Concomitant]
     Dosage: 80 MG, 1X/DAY
  9. ZOCOR [Concomitant]
     Dosage: 40 MG, 1X/DAY
  10. CELEXA [Concomitant]
     Dosage: 40 MG, 1X/DAY
  11. DIAZEPAM [Concomitant]
     Indication: ANXIETY DISORDER
     Dosage: 10 MG, 1X/DAY

REACTIONS (5)
  - Bladder disorder [Unknown]
  - Vision blurred [Unknown]
  - Fall [Unknown]
  - Joint injury [Unknown]
  - Off label use [Unknown]
